FAERS Safety Report 21582083 (Version 3)
Quarter: 2022Q4

REPORT INFORMATION
  Report Type: Report from Study
  Country: US (occurrence: US)
  Receive Date: 20221111
  Receipt Date: 20221230
  Transmission Date: 20230113
  Serious: No
  Sender: FDA-Public Use
  Company Number: US-002147023-NVSC2022US251066

PATIENT
  Sex: Female
  Weight: 70.3 kg

DRUGS (3)
  1. COSENTYX [Suspect]
     Active Substance: SECUKINUMAB
     Indication: Psoriatic arthropathy
     Dosage: 150 ML, OTHER (WAS A LOADING DOSE)
     Route: 042
     Dates: start: 20220716
  2. COSENTYX [Suspect]
     Active Substance: SECUKINUMAB
     Indication: Psoriasis
     Dosage: 150 MG, QW
     Route: 065
     Dates: start: 20220807
  3. COSENTYX [Suspect]
     Active Substance: SECUKINUMAB
     Dosage: 150 MG
     Route: 065

REACTIONS (7)
  - Device leakage [Unknown]
  - Pain [Unknown]
  - Device physical property issue [Unknown]
  - Device defective [Unknown]
  - Incorrect route of product administration [Unknown]
  - Drug dose omission by device [Unknown]
  - Therapeutic product effect decreased [Unknown]
